FAERS Safety Report 16230653 (Version 4)
Quarter: 2020Q1

REPORT INFORMATION
  Report Type: Report from Study
  Country: US (occurrence: US)
  Receive Date: 20190423
  Receipt Date: 20200212
  Transmission Date: 20200409
  Serious: Yes (Hospitalization)
  Sender: FDA-Public Use
  Company Number: US-ACTELION-A-NJ2019-189431

PATIENT
  Age: 70 Year
  Sex: Female

DRUGS (18)
  1. POTASSIUM CHLORIDE. [Concomitant]
     Active Substance: POTASSIUM CHLORIDE
  2. PANTOPRAZOLE [Concomitant]
     Active Substance: PANTOPRAZOLE
  3. ARIPIPRAZOLE. [Concomitant]
     Active Substance: ARIPIPRAZOLE
  4. DOCUSATE SODIUM. [Concomitant]
     Active Substance: DOCUSATE SODIUM
  5. ATORVASTATIN [Concomitant]
     Active Substance: ATORVASTATIN
  6. ASCORBIC ACID. [Concomitant]
     Active Substance: ASCORBIC ACID
  7. AMLODIPINE [Concomitant]
     Active Substance: AMLODIPINE BESYLATE
  8. MULTIVITAMIN [Concomitant]
     Active Substance: VITAMINS
  9. OPSUMIT [Suspect]
     Active Substance: MACITENTAN
     Indication: PULMONARY ARTERIAL HYPERTENSION
     Dosage: 10 MG, QD
     Route: 048
     Dates: start: 20160303, end: 20200127
  10. FUROSEMIDE. [Concomitant]
     Active Substance: FUROSEMIDE
  11. SUCRALFATE. [Concomitant]
     Active Substance: SUCRALFATE
  12. FERROUS SULFATE. [Concomitant]
     Active Substance: FERROUS SULFATE
  13. LISINOPRIL. [Concomitant]
     Active Substance: LISINOPRIL
  14. ASPIRIN. [Concomitant]
     Active Substance: ASPIRIN
  15. NORCO [Concomitant]
     Active Substance: ACETAMINOPHEN\HYDROCODONE BITARTRATE
  16. SILDENAFIL. [Concomitant]
     Active Substance: SILDENAFIL
     Dosage: UNK
  17. BUPROPION. [Concomitant]
     Active Substance: BUPROPION
  18. HYDRALAZINE [Concomitant]
     Active Substance: HYDRALAZINE HYDROCHLORIDE

REACTIONS (16)
  - Hip surgery [Unknown]
  - Hyperhidrosis [Unknown]
  - Polyuria [Unknown]
  - Anaemia [Unknown]
  - Cardiac failure congestive [Unknown]
  - Left ventricular failure [Unknown]
  - Respiratory failure [Unknown]
  - Haematocrit decreased [Unknown]
  - Haemoglobin decreased [Unknown]
  - Pneumonia [Unknown]
  - Fall [Unknown]
  - Pyrexia [Recovered/Resolved]
  - Femoral neck fracture [Unknown]
  - Dyspnoea [Unknown]
  - Peripheral swelling [Unknown]
  - Palpitations [Unknown]

NARRATIVE: CASE EVENT DATE: 20190323
